FAERS Safety Report 12714913 (Version 1)
Quarter: 2016Q3

REPORT INFORMATION
  Report Type: Spontaneous
  Country: GB (occurrence: GB)
  Receive Date: 20160905
  Receipt Date: 20160905
  Transmission Date: 20161109
  Serious: Yes (Other)
  Sender: FDA-Public Use
  Company Number: GB-JNJFOC-20160902635

PATIENT
  Age: 74 Year
  Sex: Male

DRUGS (1)
  1. RISPERDAL CONSTA [Suspect]
     Active Substance: RISPERIDONE
     Indication: PRODUCT USED FOR UNKNOWN INDICATION
     Dosage: BETWEEN LEFT AND RIGHT GLUTEAL MUSCLE
     Route: 030

REACTIONS (3)
  - Drug dose omission [Unknown]
  - Weight decreased [Unknown]
  - Procedural complication [Unknown]
